FAERS Safety Report 12376094 (Version 1)
Quarter: 2016Q2

REPORT INFORMATION
  Report Type: Report from Study
  Country: MX (occurrence: MX)
  Receive Date: 20160517
  Receipt Date: 20160517
  Transmission Date: 20160815
  Serious: Yes (Hospitalization)
  Sender: FDA-Public Use
  Company Number: MX-BIOGEN-2014BI027389

PATIENT
  Age: 29 Year
  Sex: Male
  Weight: 96.2 kg

DRUGS (2)
  1. BG00012 [Suspect]
     Active Substance: DIMETHYL FUMARATE
     Indication: MULTIPLE SCLEROSIS
     Route: 048
     Dates: start: 20080414, end: 20131010
  2. INTERFERON BETA NOS [Concomitant]
     Active Substance: INTERFERON BETA
     Indication: MULTIPLE SCLEROSIS
     Dates: start: 20131102, end: 20131130

REACTIONS (2)
  - Asthma [Recovered/Resolved]
  - Pneumonia [Recovered/Resolved]

NARRATIVE: CASE EVENT DATE: 20131205
